FAERS Safety Report 24767251 (Version 1)
Quarter: 2024Q4

REPORT INFORMATION
  Report Type: Spontaneous
  Country: AU (occurrence: AU)
  Receive Date: 20241223
  Receipt Date: 20241223
  Transmission Date: 20250115
  Serious: Yes (Hospitalization)
  Sender: BAXTER
  Company Number: AU-BAXTER-2024BAX029557

PATIENT
  Sex: Female

DRUGS (6)
  1. SODIUM CHLORIDE [Suspect]
     Active Substance: SODIUM CHLORIDE
     Indication: Medication dilution
     Dosage: (TOTAL VOLUME: 250 ML) 216.67 ML OF SODIUM CHLORIDE 0.9% (SW) USED TO DILUTE 250.00 MG OF MORPHINE S
     Route: 037
     Dates: start: 20240726, end: 20240806
  2. SODIUM CHLORIDE [Suspect]
     Active Substance: SODIUM CHLORIDE
     Dosage: (TOTAL VOLUME: 250 ML) 216.67 ML OF SODIUM CHLORIDE 0.9% (SW) USED TO DILUTE 250.00 MG OF MORPHINE S
     Route: 037
     Dates: start: 20241029, end: 20241105
  3. MORPHINE SULFATE [Suspect]
     Active Substance: MORPHINE SULFATE
     Indication: Analgesic therapy
     Dosage: (TOTAL VOLUME: 250 ML) 250.00 MG OF MORPHINE SULFATE HS DILUTED IN 216.67 ML OF SODIUM CHLORIDE 0.9%
     Route: 037
     Dates: start: 20240726, end: 20240806
  4. MORPHINE SULFATE [Suspect]
     Active Substance: MORPHINE SULFATE
     Dosage: (TOTAL VOLUME: 250 ML) 250.00 MG OF MORPHINE SULFATE HS DILUTED IN 216.67 ML OF SODIUM CHLORIDE 0.9%
     Route: 037
     Dates: start: 20241029, end: 20241105
  5. ROPIVACAINE [Suspect]
     Active Substance: ROPIVACAINE
     Indication: Analgesic therapy
     Dosage: (TOTAL VOLUME: 250 ML) 250.00 MG OF ROPIVACAINE DILUTED IN 216.67 ML OF SODIUM CHLORIDE 0.9% (SW) VI
     Route: 037
     Dates: start: 20240726, end: 20240806
  6. ROPIVACAINE [Suspect]
     Active Substance: ROPIVACAINE
     Dosage: (TOTAL VOLUME: 250 ML) 250.00 MG OF ROPIVACAINE DILUTED IN 216.67 ML OF SODIUM CHLORIDE 0.9% (SW) VI
     Route: 037
     Dates: start: 20241029, end: 20241105

REACTIONS (6)
  - Pain [Unknown]
  - Expired product administered [Unknown]
  - Product administration interrupted [Recovered/Resolved]
  - Product administration interrupted [Unknown]
  - Device infusion issue [Recovered/Resolved]
  - Device infusion issue [Unknown]

NARRATIVE: CASE EVENT DATE: 20240806
